FAERS Safety Report 5715300-2 (Version None)
Quarter: 2008Q2

REPORT INFORMATION
  Report Type: 
  Country: None (occurrence: None)
  Receive Date: 20080423
  Receipt Date: 20080415
  Transmission Date: 20081010
  Serious: Yes (Hospitalization)
  Sender: FDA-Public Use
  Company Number: ES-PFIZER INC-2008020543

PATIENT
  Age: 86 Year
  Sex: Female

DRUGS (6)
  1. ALDACTONE [Suspect]
     Indication: HYPERTENSION
     Route: 048
     Dates: start: 20070101, end: 20070819
  2. ENALAPRIL MALEATE [Interacting]
     Indication: HYPERTENSION
     Route: 048
     Dates: start: 20070101, end: 20070819
  3. SEGURIL [Interacting]
     Indication: HYPERTENSION
     Dosage: DAILY DOSE:20MG
     Route: 048
  4. DIGOXIN [Interacting]
     Indication: ATRIAL FIBRILLATION
     Dosage: DAILY DOSE:.7MG
     Route: 048
     Dates: start: 20070101, end: 20070819
  5. ORFIDAL [Concomitant]
     Indication: ANXIETY
     Dosage: DAILY DOSE:1MG
     Route: 048
  6. VENORUTON [Concomitant]
     Indication: VENOUS STASIS
     Dosage: DAILY DOSE:1GRAM
     Route: 048

REACTIONS (4)
  - DRUG INTERACTION [None]
  - HYPOKALAEMIA [None]
  - RENAL FAILURE ACUTE [None]
  - THERAPEUTIC AGENT TOXICITY [None]
